FAERS Safety Report 15276338 (Version 2)
Quarter: 2018Q4

REPORT INFORMATION
  Report Type: Spontaneous
  Country: DE (occurrence: DE)
  Receive Date: 20180814
  Receipt Date: 20181001
  Transmission Date: 20190204
  Serious: Yes (Other)
  Sender: FDA-Public Use
  Company Number: DE-MYLANLABS-2018M1061558

PATIENT
  Age: 85 Year
  Sex: Female
  Weight: 82.6 kg

DRUGS (20)
  1. TORASEMID-1A PHARMA [Suspect]
     Active Substance: TORSEMIDE
     Dosage: 10 MG, QD (1 DF, QD)
     Route: 048
     Dates: start: 20180424
  2. LERCANIDIPINE HYDROCHLORIDE [Suspect]
     Active Substance: LERCANIDIPINE HYDROCHLORIDE
     Indication: HYPERTENSION
     Dosage: 10 MG, QD
     Dates: start: 201708, end: 201710
  3. DEKRISTOL [Concomitant]
     Active Substance: CHOLECALCIFEROL
     Indication: OSTEOPOROSIS
     Dosage: UNK
     Route: 048
     Dates: start: 20180101
  4. BERODUAL [Concomitant]
     Active Substance: FENOTEROL HYDROBROMIDE\IPRATROPIUM BROMIDE
     Indication: DYSPNOEA
     Dosage: UNK
     Route: 048
  5. CALCIUM-SANDOZ                     /00751528/ [Concomitant]
     Indication: OSTEOPOROSIS
     Dosage: 500 MG, QD
     Route: 048
  6. PANTOPRAZOLE SODIUM. [Concomitant]
     Active Substance: PANTOPRAZOLE SODIUM
     Indication: PRODUCT USED FOR UNKNOWN INDICATION
     Dosage: 20 MG, QD
     Route: 048
  7. TILIDINE [Concomitant]
     Active Substance: TILIDINE
     Indication: PAIN
     Dosage: UNK
     Route: 048
  8. RAMIPRIL. [Suspect]
     Active Substance: RAMIPRIL
     Indication: PRODUCT USED FOR UNKNOWN INDICATION
     Dosage: UNK
     Route: 065
     Dates: start: 20171030, end: 20171213
  9. CORTISON [Suspect]
     Active Substance: CORTISONE ACETATE
     Indication: COUGH
     Dosage: UNK
     Route: 048
     Dates: start: 201804
  10. TORASEMID-1A PHARMA [Suspect]
     Active Substance: TORSEMIDE
     Indication: DIURETIC THERAPY
     Dosage: 2 DF, QD (20 MG DAILY)
     Route: 048
     Dates: start: 20160326, end: 20180424
  11. MAGNESIUM [Concomitant]
     Active Substance: MAGNESIUM
     Indication: CARDIAC DISORDER
     Dosage: 500 MG, QD
     Route: 048
     Dates: start: 20180131
  12. LERCANIDIPINE HYDROCHLORIDE [Suspect]
     Active Substance: LERCANIDIPINE HYDROCHLORIDE
     Indication: CARDIAC FAILURE
     Dosage: UNK
     Route: 065
  13. ASS AL [Concomitant]
     Active Substance: ASPIRIN
     Indication: PRODUCT USED FOR UNKNOWN INDICATION
     Dosage: UNK
     Dates: start: 20170901
  14. PREDNISOLONE. [Concomitant]
     Active Substance: PREDNISOLONE
     Indication: COUGH
     Dosage: 10 MG, QD
     Dates: start: 20180424
  15. L THYROXIN BETA [Concomitant]
     Indication: THYROID DISORDER
     Dosage: 0.075 MG, QD
     Route: 048
  16. NOVAMINSULFON [Concomitant]
     Active Substance: METAMIZOLE
     Indication: PAIN
     Dosage: 2000 MG, QD
     Route: 048
  17. VALSARTAN. [Suspect]
     Active Substance: VALSARTAN
     Indication: PRODUCT USED FOR UNKNOWN INDICATION
     Dosage: UNK
     Route: 065
  18. BISOPROLOL 1A PHARMA [Suspect]
     Active Substance: BISOPROLOL
     Indication: CARDIAC FAILURE CHRONIC
     Dosage: UNK
  19. METOPROLOL. [Concomitant]
     Active Substance: METOPROLOL
     Indication: PRODUCT USED FOR UNKNOWN INDICATION
     Dosage: UNK
  20. BISOPROLOL 1A PHARMA [Suspect]
     Active Substance: BISOPROLOL
     Indication: HYPERTENSION
     Dosage: 2.5 MG, QD
     Route: 048
     Dates: start: 201711, end: 20180123

REACTIONS (15)
  - Blood glucose increased [Unknown]
  - Weight increased [Not Recovered/Not Resolved]
  - Renal failure [Unknown]
  - Oedema [Unknown]
  - Chronic kidney disease [Unknown]
  - Oedema peripheral [Unknown]
  - Drug intolerance [Not Recovered/Not Resolved]
  - Fatigue [Not Recovered/Not Resolved]
  - Dyspnoea [Recovered/Resolved]
  - Abdominal discomfort [Unknown]
  - Product use in unapproved indication [Recovered/Resolved]
  - General physical health deterioration [Not Recovered/Not Resolved]
  - Nocturia [Not Recovered/Not Resolved]
  - Nasopharyngitis [Unknown]
  - Cough [Unknown]

NARRATIVE: CASE EVENT DATE: 201605
